FAERS Safety Report 24562414 (Version 3)
Quarter: 2025Q3

REPORT INFORMATION
  Report Type: Report from Study
  Country: US (occurrence: US)
  Receive Date: 20241029
  Receipt Date: 20250903
  Transmission Date: 20251020
  Serious: No
  Sender: SANDOZ
  Company Number: US-SANDOZ-SDZ2024US090781

PATIENT
  Sex: Male

DRUGS (2)
  1. OMNITROPE [Suspect]
     Active Substance: SOMATROPIN
     Indication: Product used for unknown indication
     Route: 065
  2. OMNITROPE [Suspect]
     Active Substance: SOMATROPIN
     Indication: Product used for unknown indication
     Route: 065

REACTIONS (5)
  - Device difficult to use [Unknown]
  - Medical device pain [Unknown]
  - Device breakage [Unknown]
  - Product dose omission issue [Unknown]
  - Product use complaint [Unknown]
